FAERS Safety Report 7472622-5 (Version None)
Quarter: 2011Q2

REPORT INFORMATION
  Report Type: 
  Country: None (occurrence: None)
  Receive Date: 20110511
  Receipt Date: 20110427
  Transmission Date: 20111010
  Serious: Yes (Hospitalization)
  Sender: FDA-Public Use
  Company Number: DE-BRISTOL-MYERS SQUIBB COMPANY-15703002

PATIENT
  Age: 70 Year
  Sex: Male
  Weight: 76 kg

DRUGS (14)
  1. SPIRIVA [Concomitant]
  2. ONDANSETRON [Concomitant]
  3. NEBIVOLOL HCL [Concomitant]
  4. ERBITUX [Suspect]
     Indication: NON-SMALL CELL LUNG CANCER
     Dosage: CYCLE 1DAY 15 CHEMOTHERAPY,250MG/M2
     Route: 042
     Dates: start: 20110420
  5. CARBOPLATIN [Suspect]
     Indication: NON-SMALL CELL LUNG CANCER
     Dosage: 1DF=5AUC,CYCLE 1DAY 15 CHEMOTHERAPY,C5
     Route: 042
     Dates: start: 20110420
  6. BERODUAL [Concomitant]
  7. METOCLOPRAMIDE [Concomitant]
  8. ACETYLCYSTEINE [Concomitant]
     Dosage: 1 DF: 600  UNIT NOS
  9. ESCITALOPRAM [Concomitant]
  10. GEMCITABINE HCL [Suspect]
     Indication: NON-SMALL CELL LUNG CANCER
     Dosage: CYCLE 1DAY 15 CHEMOTHERAPY
     Route: 042
     Dates: start: 20110420
  11. SYMBICORT [Concomitant]
  12. SIMVASTATIN [Concomitant]
  13. ACETYL SALICYLIC ACID USP BAT [Concomitant]
     Indication: HYPERTENSION
     Dosage: 1 DF: 100 UNIT NOS
  14. PANTOPRAZOLE [Concomitant]

REACTIONS (1)
  - DUODENAL ULCER [None]
